FAERS Safety Report 5013931-9 (Version None)
Quarter: 2006Q2

REPORT INFORMATION
  Report Type: 
  Country: None (occurrence: None)
  Receive Date: 20060525
  Receipt Date: 20060515
  Transmission Date: 20061013
  Serious: Yes (Death)
  Sender: FDA-Public Use
  Company Number: 225244

PATIENT
  Sex: Male

DRUGS (5)
  1. MABTHERA [Suspect]
     Indication: NON-HODGKIN'S LYMPHOMA
     Dosage: 600 MG, UNK, INTRAVENOUS
     Route: 042
     Dates: start: 20060315, end: 20060315
  2. CYCLOPHOSPHAMIDE [Suspect]
     Indication: LYMPHOMA
     Dosage: 500 MG, UNK, INTRAVENOUS
     Route: 042
     Dates: start: 20060315, end: 20060315
  3. DOXORUBICIN HYDROCHLORIDE [Suspect]
     Indication: LYMPHOMA
     Dosage: 30 MG, UNK, INTRAVENOUS
     Route: 042
     Dates: start: 20060315, end: 20060315
  4. VINCRISTINE [Suspect]
     Indication: LYMPHOMA
     Dosage: 2 MG, UNK, INTRAVENOUS
     Route: 042
     Dates: start: 20060315, end: 20060315
  5. PREDNISONE TAB [Suspect]
     Dosage: 60 MG, UNK, ORAL
     Route: 048
     Dates: start: 20060315, end: 20060319

REACTIONS (2)
  - CONDITION AGGRAVATED [None]
  - RENAL FAILURE CHRONIC [None]
